FAERS Safety Report 5789658-2 (Version None)
Quarter: 2008Q2

REPORT INFORMATION
  Report Type: 
  Country: None (occurrence: None)
  Receive Date: 20080626
  Receipt Date: 20080221
  Transmission Date: 20081010
  Serious: No
  Sender: FDA-Public Use
  Company Number: A0708881A

PATIENT
  Age: 52 Year
  Sex: Female
  Weight: 98.2 kg

DRUGS (1)
  1. ALLI [Suspect]
     Indication: DRUG USE FOR UNKNOWN INDICATION
     Dates: start: 20080206, end: 20080215

REACTIONS (5)
  - ABDOMINAL PAIN [None]
  - CONSTIPATION [None]
  - DRUG INEFFECTIVE [None]
  - GASTROINTESTINAL PAIN [None]
  - WEIGHT INCREASED [None]
